FAERS Safety Report 23064656 (Version 1)
Quarter: 2023Q4

REPORT INFORMATION
  Report Type: Spontaneous
  Country: US (occurrence: US)
  Receive Date: 20231013
  Receipt Date: 20231013
  Transmission Date: 20240109
  Serious: No
  Sender: FDA-Public Use
  Company Number: US-MYLANLABS-2023M1107300

PATIENT
  Sex: Female
  Weight: 48.99 kg

DRUGS (1)
  1. SYNTHROID [Suspect]
     Active Substance: LEVOTHYROXINE SODIUM
     Indication: Thyroid disorder
     Route: 065

REACTIONS (5)
  - Feeling abnormal [Unknown]
  - Drug intolerance [Unknown]
  - Adverse drug reaction [Unknown]
  - Nervousness [Unknown]
  - Wrong technique in product usage process [Unknown]
